FAERS Safety Report 5315974-4 (Version None)
Quarter: 2007Q2

REPORT INFORMATION
  Report Type: 
  Country: None (occurrence: None)
  Receive Date: 20070503
  Receipt Date: 20070419
  Transmission Date: 20071010
  Serious: Yes (Hospitalization)
  Sender: FDA-Public Use
  Company Number: JP-ROCHE-487826

PATIENT
  Age: 96 Week
  Sex: Female
  Weight: 9 kg

DRUGS (1)
  1. TAMIFLU [Suspect]
     Dosage: ON 12 MARCH 2007, THE PATIENT TOOK 10 DOSES OF TAMIFLU AT A TIME. FORM REPORTED AS: DRY SYRUP.
     Route: 048
     Dates: start: 20070312, end: 20070312

REACTIONS (3)
  - OVERDOSE [None]
  - SOMNOLENCE [None]
  - VOMITING [None]
